FAERS Safety Report 10143924 (Version 1)
Quarter: 2014Q2

REPORT INFORMATION
  Report Type: Report from Study
  Country: JP (occurrence: JP)
  Receive Date: 20140430
  Receipt Date: 20140430
  Transmission Date: 20141212
  Serious: Yes (Hospitalization)
  Sender: FDA-Public Use
  Company Number: JP-ASTRAZENECA-2014SE29153

PATIENT
  Age: 76 Year
  Sex: Male

DRUGS (13)
  1. NEXIUM [Suspect]
     Indication: PROPHYLAXIS AGAINST GASTROINTESTINAL ULCER
     Route: 048
     Dates: start: 20130417, end: 20130614
  2. BAYASPIRIN [Concomitant]
     Indication: PERIPHERAL ARTERIAL OCCLUSIVE DISEASE
     Dosage: 100 MG
     Route: 065
  3. BLOPRESS [Concomitant]
     Indication: HYPERTENSION
     Route: 048
     Dates: end: 20130614
  4. PLETAAL OD [Concomitant]
     Indication: THROMBOSIS PROPHYLAXIS
     Dosage: 150 MG
     Route: 048
     Dates: end: 20130614
  5. ANPLAG [Concomitant]
     Indication: THROMBOSIS PROPHYLAXIS
     Dosage: 300 MG
     Route: 048
     Dates: end: 20130614
  6. EPADEL [Concomitant]
     Indication: THROMBOSIS PROPHYLAXIS
     Dosage: 1800 MG
     Route: 048
     Dates: end: 20130614
  7. GASMOTIN [Concomitant]
     Indication: PEPTIC ULCER
     Dosage: 15 MG
     Route: 048
     Dates: start: 20130417
  8. NAUZELIN [Concomitant]
     Indication: GASTROINTESTINAL MOTILITY DISORDER
     Dosage: 20 MG
     Route: 048
     Dates: start: 20130418, end: 20130501
  9. BI_SIFROL [Concomitant]
     Indication: PARKINSON^S DISEASE
     Dosage: 0.25 MG
     Route: 048
     Dates: start: 20130418, end: 20130614
  10. NEODOPASTON [Concomitant]
     Indication: PARKINSON^S DISEASE
     Dosage: 200 MG
     Route: 048
     Dates: start: 20130502, end: 20130614
  11. CALONAL [Concomitant]
     Indication: ANALGESIC THERAPY
     Dosage: 400 MG
     Route: 048
     Dates: start: 20130605, end: 20130611
  12. MUCOSTA [Concomitant]
     Indication: PEPTIC ULCER
     Dosage: 200 MG
     Route: 048
     Dates: start: 20130605, end: 20130611
  13. MOHRUS TAPE [Concomitant]
     Route: 062
     Dates: start: 20130613

REACTIONS (2)
  - Pneumonia aspiration [Unknown]
  - Rib fracture [Unknown]
